FAERS Safety Report 6414403-7 (Version None)
Quarter: 2009Q4

REPORT INFORMATION
  Report Type: 
  Country: None (occurrence: None)
  Receive Date: 20091026
  Receipt Date: 20091022
  Transmission Date: 20100525
  Serious: Yes (Other)
  Sender: FDA-Public Use
  Company Number: US-BAYER-200915796BCC

PATIENT
  Age: 55 Year
  Sex: Male

DRUGS (2)
  1. ASPIRIN [Suspect]
     Indication: CEREBROVASCULAR ACCIDENT
     Route: 048
     Dates: start: 20070101
  2. PLAVIX [Suspect]
     Indication: CEREBROVASCULAR ACCIDENT
     Dosage: TOTAL DAILY DOSE: 75 MG  UNIT DOSE: 75 MG
     Route: 048
     Dates: start: 20070101

REACTIONS (4)
  - CONTUSION [None]
  - HAEMORRHAGIC DIATHESIS [None]
  - LIVER INJURY [None]
  - STOOL ANALYSIS ABNORMAL [None]
